FAERS Safety Report 6594399-8 (Version None)
Quarter: 2010Q1

REPORT INFORMATION
  Report Type: 
  Country: None (occurrence: None)
  Receive Date: 20100222
  Receipt Date: 20100212
  Transmission Date: 20100710
  Serious: Yes (Other)
  Sender: FDA-Public Use
  Company Number: B0350191A

PATIENT
  Sex: Male

DRUGS (29)
  1. EPIVIR [Suspect]
     Indication: HIV INFECTION
     Dosage: 150MG TWICE PER DAY
     Route: 048
     Dates: start: 20000302, end: 20061109
  2. ZERIT [Suspect]
     Indication: HIV INFECTION
     Dosage: 80MG PER DAY
     Route: 048
     Dates: start: 20000302, end: 20040421
  3. VIRACEPT [Suspect]
     Indication: HIV INFECTION
     Route: 048
     Dates: start: 20000302, end: 20040929
  4. REYATAZ [Suspect]
     Indication: HIV INFECTION
     Route: 048
     Dates: start: 20040930, end: 20061109
  5. NORVIR [Suspect]
     Indication: HIV INFECTION
     Route: 048
     Dates: start: 20051103
  6. PURSENNID [Concomitant]
     Indication: CONSTIPATION
     Dosage: 24MG PER DAY
     Route: 048
     Dates: start: 20030417, end: 20030709
  7. PURSENNID [Concomitant]
     Dosage: 12MG PER DAY
     Route: 048
     Dates: start: 20031009
  8. GLIBENCLAMIDE [Concomitant]
     Indication: DIABETES MELLITUS
     Dates: start: 20020509
  9. ZIAGEN [Concomitant]
     Indication: HIV INFECTION
     Dosage: 300MG TWICE PER DAY
     Route: 048
     Dates: start: 20040422
  10. NOVOLIN [Concomitant]
     Indication: DIABETES MELLITUS
     Route: 058
     Dates: start: 20040401, end: 20041027
  11. INTRON A [Concomitant]
     Indication: HEPATITIS C
     Route: 042
     Dates: start: 20050308, end: 20050322
  12. REBETOL [Concomitant]
     Indication: HEPATITIS C
     Dosage: 400MG PER DAY
     Dates: start: 20050308, end: 20050322
  13. EUGLOCON [Concomitant]
     Indication: DIABETES MELLITUS
     Dosage: 5MG PER DAY
     Route: 048
     Dates: start: 20030401
  14. VOGLIBOSE [Concomitant]
     Dates: start: 20040814
  15. NOVOLIN [Concomitant]
     Route: 058
     Dates: start: 20050401, end: 20050608
  16. NOVOLIN [Concomitant]
     Route: 058
     Dates: start: 20050609
  17. REBETOL [Concomitant]
     Route: 048
     Dates: start: 20050330, end: 20050822
  18. INFLUENZA HA VACCINE [Concomitant]
     Route: 058
     Dates: start: 20051102, end: 20051102
  19. INTRON A [Concomitant]
     Route: 042
     Dates: start: 20050330, end: 20050822
  20. INFLUENZA HA VACCINE [Concomitant]
     Indication: ANTIVIRAL PROPHYLAXIS
     Dosage: .5MG PER DAY
     Route: 058
     Dates: start: 20051102, end: 20051102
  21. KALETRA [Concomitant]
     Indication: HIV INFECTION
     Route: 048
     Dates: start: 20061214, end: 20090218
  22. EPZICOM [Concomitant]
     Indication: HIV INFECTION
     Route: 048
     Dates: start: 20061214, end: 20090218
  23. TRUVADA [Concomitant]
     Indication: HIV INFECTION
     Route: 048
     Dates: start: 20090219
  24. PREZISTA [Concomitant]
     Indication: HIV INFECTION
     Route: 048
     Dates: start: 20090219
  25. ACTOS [Concomitant]
     Indication: DIABETES MELLITUS
     Dosage: 45MG PER DAY
     Route: 048
  26. LEVEMIR [Concomitant]
     Indication: DIABETES MELLITUS
     Dosage: 30IU PER DAY
     Route: 058
  27. NOVORAPID [Concomitant]
     Indication: DIABETES MELLITUS
     Dosage: 150IU PER DAY
     Route: 058
  28. ROHYPNOL [Concomitant]
     Indication: INSOMNIA
     Dosage: 1MG PER DAY
     Route: 065
     Dates: start: 20080515, end: 20080613
  29. MELBIN [Concomitant]
     Indication: DIABETES MELLITUS
     Dosage: 500MG PER DAY
     Route: 048
     Dates: start: 20080530

REACTIONS (7)
  - ALANINE AMINOTRANSFERASE INCREASED [None]
  - ASPARTATE AMINOTRANSFERASE INCREASED [None]
  - DIABETES MELLITUS [None]
  - FACIAL WASTING [None]
  - GAMMA-GLUTAMYLTRANSFERASE INCREASED [None]
  - HEPATITIS C [None]
  - PLATELET COUNT DECREASED [None]
